FAERS Safety Report 8355841-5 (Version None)
Quarter: 2012Q2

REPORT INFORMATION
  Report Type: 
  Country: None (occurrence: None)
  Receive Date: 20120514
  Receipt Date: 20120228
  Transmission Date: 20120825
  Serious: Yes (Other)
  Sender: FDA-Public Use
  Company Number: US-PFIZER INC-2012019855

PATIENT
  Sex: Male
  Weight: 108.84 kg

DRUGS (2)
  1. VIAGRA [Suspect]
     Indication: DYSPNOEA
     Dosage: 50 MG, 1X/DAY
     Route: 048
     Dates: start: 20110901, end: 20111218
  2. WARFARIN [Concomitant]
     Indication: BLOOD DISORDER
     Dosage: UNK

REACTIONS (1)
  - DYSPNOEA [None]
